FAERS Safety Report 7508600-7 (Version None)
Quarter: 2011Q2

REPORT INFORMATION
  Report Type: 
  Country: None (occurrence: None)
  Receive Date: 20110527
  Receipt Date: 20101214
  Transmission Date: 20111010
  Serious: No
  Sender: FDA-Public Use
  Company Number: A0900188A

PATIENT
  Age: 72 Year
  Sex: Female
  Weight: 73 kg

DRUGS (17)
  1. FLOLAN [Suspect]
     Indication: PULMONARY ARTERIAL HYPERTENSION
     Dosage: 20NGKM CONTINUOUS
     Dates: start: 20101210
  2. GLUCOSAMINE + CHONDROITIN [Concomitant]
  3. MECLIZINE [Concomitant]
     Dosage: 25MG AS REQUIRED
  4. PERCOCET [Concomitant]
     Dosage: 1TAB SEE DOSAGE TEXT
  5. REVATIO [Concomitant]
     Dosage: 80MG THREE TIMES PER DAY
  6. LEVOTHYROXINE SODIUM [Concomitant]
     Dosage: 75MCG PER DAY
  7. TESSALON [Concomitant]
     Dosage: 100MG SEE DOSAGE TEXT
  8. CELLCEPT [Concomitant]
     Dosage: 1000MG TWICE PER DAY
  9. DEMADEX [Concomitant]
     Dosage: 40MG PER DAY
  10. CHROMIUM CHLORIDE [Concomitant]
     Dosage: 200MCG PER DAY
  11. ASPIRIN [Concomitant]
     Dosage: 162.5MG PER DAY
  12. M.V.I. [Concomitant]
  13. TRACLEER [Concomitant]
     Dosage: 125MG TWICE PER DAY
  14. OMEPRAZOLE [Concomitant]
     Dosage: 20MG PER DAY
  15. PSYLLIUM [Concomitant]
     Dosage: 1PACK TWICE PER DAY
  16. CALCIUM CARBONATE [Concomitant]
     Dosage: 500MG TWICE PER DAY
  17. POTASSIUM CHLORIDE [Concomitant]
     Dosage: 40MEQ PER DAY

REACTIONS (5)
  - RETCHING [None]
  - HEADACHE [None]
  - PAIN IN JAW [None]
  - DIARRHOEA [None]
  - NAUSEA [None]
